FAERS Safety Report 17820365 (Version 1)
Quarter: 2020Q2

REPORT INFORMATION
  Report Type: Spontaneous
  Country: US (occurrence: US)
  Receive Date: 20200525
  Receipt Date: 20200525
  Transmission Date: 20200714
  Serious: Yes (Hospitalization, Other)
  Sender: FDA-Public Use
  Company Number: US-AMGEN-USASP2020081119

PATIENT
  Age: 55 Year
  Sex: Female

DRUGS (1)
  1. XGEVA [Suspect]
     Active Substance: DENOSUMAB
     Indication: BREAST CANCER METASTATIC
     Dosage: UNK
     Route: 065

REACTIONS (6)
  - Osteomalacia [Unknown]
  - Cachexia [Unknown]
  - Blood 25-hydroxycholecalciferol decreased [Unknown]
  - Blood parathyroid hormone increased [Unknown]
  - Jaundice cholestatic [Unknown]
  - Hypophosphataemia [Unknown]
